FAERS Safety Report 13441620 (Version 4)
Quarter: 2020Q3

REPORT INFORMATION
  Report Type: Report from Study
  Country: JP (occurrence: JP)
  Receive Date: 20170413
  Receipt Date: 20191118
  Transmission Date: 20201104
  Serious: Yes (Other)
  Sender: FDA-Public Use
  Company Number: JP-ROCHE-1917696

PATIENT

DRUGS (1)
  1. ALECTINIB. [Suspect]
     Active Substance: ALECTINIB
     Indication: NON-SMALL CELL LUNG CANCER
     Route: 048

REACTIONS (11)
  - Anaemia [Unknown]
  - Constipation [Unknown]
  - Dyspnoea [Unknown]
  - Embolism [Unknown]
  - Blood sodium decreased [Unknown]
  - Pain [Unknown]
  - Blood albumin decreased [Unknown]
  - Decreased appetite [Unknown]
  - Nausea [Unknown]
  - Pneumonia [Unknown]
  - Fatigue [Unknown]
